FAERS Safety Report 6266119-8 (Version None)
Quarter: 2009Q3

REPORT INFORMATION
  Report Type: 
  Country: None (occurrence: None)
  Receive Date: 20090713
  Receipt Date: 20090707
  Transmission Date: 20100115
  Serious: Yes (Hospitalization, Other)
  Sender: FDA-Public Use
  Company Number: SI-BRISTOL-MYERS SQUIBB COMPANY-14688881

PATIENT
  Sex: Female

DRUGS (3)
  1. IRBESARTAN [Suspect]
     Route: 064
  2. METHYLDOPA [Suspect]
     Route: 064
  3. LYSINE ACETYLSALICYLATE [Suspect]
     Route: 064

REACTIONS (5)
  - CEREBRAL HAEMORRHAGE [None]
  - NEONATAL RESPIRATORY DISTRESS SYNDROME [None]
  - PNEUMOTHORAX [None]
  - PREMATURE BABY [None]
  - SMALL FOR DATES BABY [None]
